FAERS Safety Report 11704427 (Version 1)
Quarter: 2015Q4

REPORT INFORMATION
  Report Type: Spontaneous
  Country: US (occurrence: US)
  Receive Date: 20151106
  Receipt Date: 20151106
  Transmission Date: 20160304
  Serious: Yes (Hospitalization)
  Sender: FDA-Public Use
  Company Number: US-BIOGENIDEC-2015BI144949

PATIENT
  Sex: Female

DRUGS (1)
  1. AVONEX [Suspect]
     Active Substance: INTERFERON BETA-1A
     Indication: MULTIPLE SCLEROSIS
     Route: 030

REACTIONS (7)
  - Abdominal pain upper [Unknown]
  - Nausea [Unknown]
  - Bradycardia [Recovered/Resolved]
  - Multiple sclerosis [Unknown]
  - Vomiting [Unknown]
  - Influenza like illness [Recovered/Resolved]
  - Chest pain [Recovered/Resolved]
